FAERS Safety Report 7817383-2 (Version None)
Quarter: 2011Q4

REPORT INFORMATION
  Report Type: 
  Country: None (occurrence: None)
  Receive Date: 20111017
  Receipt Date: 20110922
  Transmission Date: 20120403
  Serious: Yes (Hospitalization)
  Sender: FDA-Public Use
  Company Number: FR-ROCHE-764815

PATIENT
  Sex: Female
  Weight: 80 kg

DRUGS (10)
  1. LERCANIDIPINE [Concomitant]
  2. ACTEMRA [Suspect]
     Route: 042
     Dates: start: 20110202, end: 20110201
  3. ACTEMRA [Suspect]
     Dosage: SECOND INFUSION
     Route: 042
  4. ACTEMRA [Suspect]
     Dosage: THIRD  INFUSION
     Route: 042
  5. ACTEMRA [Suspect]
     Dosage: FOURTH INFUSION
     Route: 042
  6. ACTEMRA [Suspect]
     Indication: RHEUMATOID ARTHRITIS
     Dosage: FORM: INFUSION. 1ST  INFUSION
     Route: 042
  7. ACTEMRA [Suspect]
     Dosage: SIXTH INFUSION
     Route: 042
  8. ACTEMRA [Suspect]
     Dosage: EIGHTH INFUSION
     Route: 042
  9. ACTEMRA [Suspect]
     Dosage: FIFTH INFUSION
     Route: 042
  10. ACTEMRA [Suspect]
     Dosage: SEVENTH INFUSION. HALF DOSE
     Route: 042

REACTIONS (6)
  - HEPATIC ENZYME INCREASED [None]
  - THROMBOCYTOPENIA [None]
  - HEPATIC CIRRHOSIS [None]
  - HYPERLIPIDAEMIA [None]
  - HYPERCHOLESTEROLAEMIA [None]
  - CYTOLYTIC HEPATITIS [None]
